FAERS Safety Report 9189777 (Version 1)
Quarter: 2013Q1

REPORT INFORMATION
  Report Type: Spontaneous
  Country: US (occurrence: US)
  Receive Date: 20130326
  Receipt Date: 20130326
  Transmission Date: 20140127
  Serious: No
  Sender: FDA-Public Use
  Company Number: US-BAYER-2013-033681

PATIENT
  Sex: Female

DRUGS (1)
  1. OCELLA [Suspect]
     Dosage: 1 DF, QD
     Route: 048

REACTIONS (3)
  - Blood prolactin increased [None]
  - Breast discharge [None]
  - Pyrexia [None]
